FAERS Safety Report 14926896 (Version 2)
Quarter: 2018Q2

REPORT INFORMATION
  Report Type: Report from Study
  Country: None (occurrence: US)
  Receive Date: 20180523
  Receipt Date: 20180620
  Transmission Date: 20180711
  Serious: Yes (Hospitalization)
  Sender: FDA-Public Use
  Company Number: US-ABBVIE-18K-163-2287797-00

PATIENT
  Age: 72 Year
  Sex: Male

DRUGS (3)
  1. HUMIRA [Suspect]
     Active Substance: ADALIMUMAB
     Indication: COLITIS ULCERATIVE
  2. HUMIRA [Suspect]
     Active Substance: ADALIMUMAB
     Indication: CROHN^S DISEASE
     Route: 058
     Dates: start: 20141122
  3. LATANOPROST. [Concomitant]
     Active Substance: LATANOPROST
     Indication: GLAUCOMA

REACTIONS (23)
  - Intestinal obstruction [Recovered/Resolved]
  - Condition aggravated [Not Recovered/Not Resolved]
  - Ileal stenosis [Recovered/Resolved]
  - Dizziness [Recovered/Resolved]
  - Faeces hard [Recovered/Resolved]
  - Enteritis [Recovered/Resolved]
  - Dyspepsia [Recovered/Resolved]
  - Crohn^s disease [Recovered/Resolved]
  - Abdominal pain upper [Unknown]
  - Therapeutic response shortened [Not Recovered/Not Resolved]
  - Blood cholesterol increased [Not Recovered/Not Resolved]
  - Diarrhoea [Not Recovered/Not Resolved]
  - Colitis [Recovered/Resolved]
  - Flatulence [Not Recovered/Not Resolved]
  - Dyspepsia [Not Recovered/Not Resolved]
  - Gastrointestinal viral infection [Recovered/Resolved]
  - Crohn^s disease [Recovered/Resolved]
  - Gastrooesophageal reflux disease [Recovering/Resolving]
  - Drug level decreased [Not Recovered/Not Resolved]
  - Malaise [Recovered/Resolved]
  - Large intestinal obstruction [Recovered/Resolved]
  - Gastritis [Not Recovered/Not Resolved]
  - Blood iron decreased [Recovered/Resolved]

NARRATIVE: CASE EVENT DATE: 2016
